FAERS Safety Report 22155726 (Version 2)
Quarter: 2023Q2

REPORT INFORMATION
  Report Type: Report from Study
  Country: US (occurrence: US)
  Receive Date: 20230330
  Receipt Date: 20230425
  Transmission Date: 20230722
  Serious: Yes (Other)
  Sender: FDA-Public Use
  Company Number: US-JNJFOC-20230365822

PATIENT
  Age: 65 Year
  Sex: Female

DRUGS (5)
  1. SPRAVATO [Suspect]
     Active Substance: ESKETAMINE
     Indication: Major depression
     Dosage: ^56 MG, 5 TOTAL DOSES^
     Dates: start: 20230223, end: 20230308
  2. SPRAVATO [Suspect]
     Active Substance: ESKETAMINE
     Indication: Suicidal ideation
     Dosage: ^84 MG, 1 TOTAL DOSE^
     Dates: start: 20230313, end: 20230313
  3. SPRAVATO [Suspect]
     Active Substance: ESKETAMINE
     Indication: Depression
     Dosage: ^56 MG, 1 TOTAL DOSE^
     Dates: start: 20230315, end: 20230315
  4. SPRAVATO [Suspect]
     Active Substance: ESKETAMINE
     Dosage: ^84 MG, 2 TOTAL DOSES^
     Dates: start: 20230322, end: 20230324
  5. SPRAVATO [Suspect]
     Active Substance: ESKETAMINE
     Dates: start: 2023, end: 20230411

REACTIONS (6)
  - Paralysis [Recovering/Resolving]
  - Suicidal ideation [Recovering/Resolving]
  - Euphoric mood [Unknown]
  - Depressed mood [Unknown]
  - Fatigue [Recovered/Resolved]
  - Dizziness [Unknown]

NARRATIVE: CASE EVENT DATE: 20230101
